FAERS Safety Report 18768395 (Version 1)
Quarter: 2021Q1

REPORT INFORMATION
  Report Type: Spontaneous
  Country: US (occurrence: US)
  Receive Date: 20210121
  Receipt Date: 20210121
  Transmission Date: 20210419
  Serious: Yes (Disabling)
  Sender: FDA-Public Use
  Company Number: None

PATIENT
  Age: 64 Year
  Sex: Female
  Weight: 51.75 kg

DRUGS (5)
  1. DULERA [Concomitant]
     Active Substance: FORMOTEROL FUMARATE DIHYDRATE\MOMETASONE FUROATE
  2. MOBIC [Suspect]
     Active Substance: MELOXICAM
     Indication: BURSITIS
     Dosage: ?          QUANTITY:30 TABLET(S);?
     Route: 048
     Dates: start: 20200912, end: 20200915
  3. SYNTHROID GENERIC [Concomitant]
     Active Substance: LEVOTHYROXINE SODIUM
  4. PANTAPROZOLE [Concomitant]
     Active Substance: PANTOPRAZOLE SODIUM
  5. INDERAL LA [Concomitant]
     Active Substance: PROPRANOLOL HYDROCHLORIDE

REACTIONS (3)
  - Swelling [None]
  - Glomerular filtration rate decreased [None]
  - Renal failure [None]

NARRATIVE: CASE EVENT DATE: 20201001
